FAERS Safety Report 10798345 (Version 2)
Quarter: 2015Q1

REPORT INFORMATION
  Report Type: Spontaneous
  Country: DE (occurrence: DE)
  Receive Date: 20150216
  Receipt Date: 20150217
  Transmission Date: 20150721
  Serious: Yes (Death, Life-Threatening, Other)
  Sender: FDA-Public Use
  Company Number: PHHY2015DE016622

PATIENT
  Age: 30 Year
  Sex: Female

DRUGS (14)
  1. PREDNISOLONE. [Suspect]
     Active Substance: PREDNISOLONE
     Indication: MALIGNANT LYMPHOID NEOPLASM
     Dosage: 100 MG, QD
     Route: 065
  2. CYTARABINE. [Suspect]
     Active Substance: CYTARABINE
     Indication: MALIGNANT LYMPHOID NEOPLASM
     Dosage: 40 MG, QD
     Route: 042
     Dates: start: 20130115, end: 20130211
  3. DOXORUBICIN [Suspect]
     Active Substance: DOXORUBICIN
     Indication: MALIGNANT LYMPHOID NEOPLASM
     Dosage: 96 MG, QD
     Route: 065
  4. METHOTREXATE [Suspect]
     Active Substance: METHOTREXATE
     Dosage: 12 MG, QD
     Route: 037
     Dates: end: 20130211
  5. CYCLOPHOSPHAMIDE. [Suspect]
     Active Substance: CYCLOPHOSPHAMIDE
     Indication: MALIGNANT LYMPHOID NEOPLASM
     Dosage: 1448 MG, QD
     Route: 065
  6. RITUXIMAB [Suspect]
     Active Substance: RITUXIMAB
     Indication: CENTRAL NERVOUS SYSTEM LYMPHOMA
     Dosage: 720 MG, QD
     Route: 042
     Dates: start: 20130115
  7. PREDNISOLONE. [Suspect]
     Active Substance: PREDNISOLONE
     Dosage: 25 MG, QD
     Route: 065
  8. PROGRAF [Suspect]
     Active Substance: TACROLIMUS\TACROLIMUS ANHYDROUS
     Indication: MALIGNANT LYMPHOID NEOPLASM
     Dosage: 2 MG, QD
     Route: 065
  9. RITUXIMAB [Suspect]
     Active Substance: RITUXIMAB
     Indication: POST TRANSPLANT LYMPHOPROLIFERATIVE DISORDER
     Dosage: 724.39 MG, QD
     Route: 042
     Dates: end: 20130211
  10. EVEROLIMUS [Suspect]
     Active Substance: EVEROLIMUS
     Indication: MALIGNANT LYMPHOID NEOPLASM
     Dosage: 0.75 MG, QD
     Route: 065
  11. METHOTREXATE [Suspect]
     Active Substance: METHOTREXATE
     Indication: MALIGNANT LYMPHOID NEOPLASM
     Dosage: 15 MG, QD
     Route: 037
     Dates: start: 20130112
  12. THIOTEPA. [Suspect]
     Active Substance: THIOTEPA
     Indication: MALIGNANT LYMPHOID NEOPLASM
     Dosage: 77 MG, QD
     Route: 042
     Dates: start: 20130115
  13. VINCRISTINE SULFATE. [Suspect]
     Active Substance: VINCRISTINE SULFATE
     Dosage: 2 MG, QD
     Route: 065
  14. THIOTEPA. [Suspect]
     Active Substance: THIOTEPA
     Dosage: 40 MG, QD
     Route: 042

REACTIONS (10)
  - Neurological decompensation [Fatal]
  - Neutropenic sepsis [Fatal]
  - Platelet count decreased [Unknown]
  - Meningitis [Fatal]
  - Central nervous system fungal infection [Fatal]
  - Respiratory failure [Fatal]
  - Multi-organ failure [Fatal]
  - Sinusitis [Fatal]
  - White blood cell count decreased [Unknown]
  - Stomatitis [Unknown]

NARRATIVE: CASE EVENT DATE: 20130121
